FAERS Safety Report 5467290-8 (Version None)
Quarter: 2007Q3

REPORT INFORMATION
  Report Type: 
  Country: None (occurrence: None)
  Receive Date: 20070920
  Receipt Date: 20070912
  Transmission Date: 20080115
  Serious: Yes (Other)
  Sender: FDA-Public Use
  Company Number: 2007-04185

PATIENT
  Age: 37 Year
  Sex: Female

DRUGS (3)
  1. TRELSTAR DEPOT [Suspect]
     Indication: ENDOMETRIOSIS
     Dosage: SEE IMAGE
     Route: 030
     Dates: start: 20070630, end: 20070630
  2. TRELSTAR DEPOT [Suspect]
     Indication: ENDOMETRIOSIS
     Dosage: SEE IMAGE
     Route: 030
     Dates: start: 20070701, end: 20070701
  3. TRELSTAR DEPOT [Suspect]
     Indication: ENDOMETRIOSIS
     Dosage: SEE IMAGE
     Route: 030
     Dates: start: 20070827

REACTIONS (1)
  - RHEUMATOID ARTHRITIS [None]
